FAERS Safety Report 17742375 (Version 1)
Quarter: 2020Q2

REPORT INFORMATION
  Report Type: Spontaneous
  Country: US (occurrence: US)
  Receive Date: 20200504
  Receipt Date: 20200504
  Transmission Date: 20200714
  Serious: Yes (Other)
  Sender: FDA-Public Use
  Company Number: US-009507513-2004USA008923

PATIENT
  Age: 67 Year
  Sex: Female

DRUGS (1)
  1. KEYTRUDA [Suspect]
     Active Substance: PEMBROLIZUMAB
     Indication: BLADDER CANCER
     Dosage: DOSE UNKNOWN BY REPORTER/FREQUENCY EVERY 3 WEEKS
     Route: 042
     Dates: start: 20190503

REACTIONS (3)
  - Headache [Unknown]
  - Urticaria [Unknown]
  - Deafness [Unknown]

NARRATIVE: CASE EVENT DATE: 20190530
